FAERS Safety Report 8481363-7 (Version None)
Quarter: 2012Q3

REPORT INFORMATION
  Report Type: 
  Country: None (occurrence: None)
  Receive Date: 20120702
  Receipt Date: 20120628
  Transmission Date: 20120928
  Serious: Yes (Life-Threatening, Hospitalization, Disabling)
  Sender: FDA-Public Use
  Company Number: GB-SHIRE-ALL1-2012-02989

PATIENT
  Age: 64 Year
  Sex: Female
  Weight: 59 kg

DRUGS (7)
  1. HYDROXYUREA [Concomitant]
     Indication: PRODUCT USED FOR UNKNOWN INDICATION
     Dosage: UNK UNK, UNKNOWN
     Route: 065
  2. SENNA                              /00571901/ [Concomitant]
     Indication: PRODUCT USED FOR UNKNOWN INDICATION
     Dosage: UNK UNK, UNKNOWN
     Route: 065
  3. ASPIRIN [Concomitant]
     Indication: PRODUCT USED FOR UNKNOWN INDICATION
     Dosage: UNK UNK, UNKNOWN
     Route: 065
  4. FOLIC ACID [Concomitant]
     Indication: PRODUCT USED FOR UNKNOWN INDICATION
     Dosage: UNK UNK, UNKNOWN
     Route: 065
  5. ANAGRELIDE HYDROCHLORIDE [Suspect]
     Indication: MYELOFIBROSIS
     Dosage: 1 MG, UNKNOWN
     Route: 048
     Dates: end: 20120528
  6. ALLOPURINOL [Concomitant]
     Indication: PRODUCT USED FOR UNKNOWN INDICATION
     Dosage: UNK, UNKNOWN
     Route: 065
  7. PENICILLIN V [Concomitant]
     Indication: PRODUCT USED FOR UNKNOWN INDICATION
     Dosage: UNK UNK, UNKNOWN
     Route: 065

REACTIONS (6)
  - COUGH [None]
  - RENAL FAILURE [None]
  - OFF LABEL USE [None]
  - CREPITATIONS [None]
  - LEFT VENTRICULAR DYSFUNCTION [None]
  - CARDIAC FAILURE CONGESTIVE [None]
